FAERS Safety Report 9258269 (Version 1)
Quarter: 2013Q2

REPORT INFORMATION
  Report Type: Spontaneous
  Country: DE (occurrence: DE)
  Receive Date: 20130426
  Receipt Date: 20130426
  Transmission Date: 20140414
  Serious: Yes (Other)
  Sender: FDA-Public Use
  Company Number: DE-AMGEN-DEUSP2013026640

PATIENT
  Age: 69 Year
  Sex: Female

DRUGS (13)
  1. PROLIA [Suspect]
     Indication: OSTEOPOROSIS
     Dosage: 60 MG, UNK
     Route: 058
     Dates: start: 201109, end: 201209
  2. XAPRO [Concomitant]
  3. CARDUUS MARIANUS [Concomitant]
  4. VISCUM ALBUM [Concomitant]
  5. CRATAEGUS                          /01349301/ [Concomitant]
  6. HELLEBORUS EXTRACT [Concomitant]
  7. STEIROCALL [Concomitant]
  8. CONTRAMUTAN                        /01775401/ [Concomitant]
  9. SPARTIOL [Concomitant]
  10. TARAXACUM [Concomitant]
  11. CARBO VEGETABILIS INJEEL [Concomitant]
  12. IBEROGAST [Concomitant]
  13. DIOSCOREA VILLOSA [Concomitant]

REACTIONS (7)
  - Infection [Not Recovered/Not Resolved]
  - Pyrexia [Not Recovered/Not Resolved]
  - Migraine [Not Recovered/Not Resolved]
  - Nausea [Not Recovered/Not Resolved]
  - Sinusitis [Not Recovered/Not Resolved]
  - Dizziness [Not Recovered/Not Resolved]
  - Pain in extremity [Not Recovered/Not Resolved]
